FAERS Safety Report 6073526-5 (Version None)
Quarter: 2009Q1

REPORT INFORMATION
  Report Type: 
  Country: None (occurrence: None)
  Receive Date: 20090211
  Receipt Date: 20090130
  Transmission Date: 20090719
  Serious: Yes (Hospitalization)
  Sender: FDA-Public Use
  Company Number: JP-ABBOTT-07P-087-0427776-00

PATIENT
  Age: 77 Year
  Sex: Male

DRUGS (6)
  1. LEUPROLIDE ACETATE [Suspect]
     Indication: PROSTATE CANCER STAGE II
     Route: 058
     Dates: start: 20060824
  2. LEUPROLIDE ACETATE [Suspect]
     Dates: start: 20060727, end: 20060727
  3. CASODEX [Concomitant]
     Indication: PROSTATE CANCER STAGE II
     Route: 048
     Dates: start: 20060713
  4. DIOVAN [Concomitant]
     Indication: HYPERTENSION
     Route: 048
  5. NIVADIL [Concomitant]
     Indication: HYPERTENSION
     Route: 048
  6. PANALDINE [Concomitant]
     Indication: ARRHYTHMIA
     Route: 048

REACTIONS (3)
  - APPENDICITIS [None]
  - LARGE INTESTINE PERFORATION [None]
  - POLLAKIURIA [None]
